FAERS Safety Report 8267824-4 (Version None)
Quarter: 2012Q2

REPORT INFORMATION
  Report Type: 
  Country: None (occurrence: None)
  Receive Date: 20120409
  Receipt Date: 20120402
  Transmission Date: 20120825
  Serious: Yes (Hospitalization)
  Sender: FDA-Public Use
  Company Number: AU-ASTRAZENECA-2012SE21900

PATIENT
  Age: 56 Year
  Sex: Male

DRUGS (3)
  1. OMEPRAZOLE [Suspect]
     Route: 048
     Dates: end: 20120331
  2. ESOMEPRAZOLE MAGNESIUM [Suspect]
     Route: 048
  3. SPIRIVA [Concomitant]

REACTIONS (3)
  - DYSPNOEA [None]
  - INTENTIONAL DRUG MISUSE [None]
  - HYPERCHLORHYDRIA [None]
